FAERS Safety Report 7781770-1 (Version None)
Quarter: 2011Q3

REPORT INFORMATION
  Report Type: 
  Country: None (occurrence: None)
  Receive Date: 20110927
  Receipt Date: 20110919
  Transmission Date: 20111222
  Serious: Yes (Hospitalization)
  Sender: FDA-Public Use
  Company Number: US-GLAXOSMITHKLINE-A0945155A

PATIENT
  Age: 9 Year
  Sex: Female

DRUGS (2)
  1. NO CONCURRENT MEDICATION [Concomitant]
  2. FLOVENT [Suspect]
     Indication: ASTHMA
     Dosage: 2PUFF TWICE PER DAY
     Route: 055
     Dates: start: 20100101, end: 20110907

REACTIONS (10)
  - ANAPHYLACTIC REACTION [None]
  - EYE SWELLING [None]
  - SWELLING FACE [None]
  - POLYARTHRITIS [None]
  - PYREXIA [None]
  - URTICARIA [None]
  - LIP SWELLING [None]
  - SERUM SICKNESS [None]
  - LOCAL SWELLING [None]
  - WHEEZING [None]
